FAERS Safety Report 9433527 (Version 1)
Quarter: 2013Q3

REPORT INFORMATION
  Report Type: Report from Study
  Country: DE (occurrence: DE)
  Receive Date: 20130731
  Receipt Date: 20130731
  Transmission Date: 20140515
  Serious: Yes (Hospitalization, Other)
  Sender: FDA-Public Use
  Company Number: DE-ROCHE-1254425

PATIENT
  Sex: Female

DRUGS (11)
  1. RITUXIMAB [Suspect]
     Indication: RHEUMATOID ARTHRITIS
     Dosage: LAST DOSE PRIOR TO SAE ON 14/JUN/2012
     Route: 065
     Dates: start: 20111004
  2. ADALIMUMAB [Suspect]
     Indication: RHEUMATOID ARTHRITIS
     Route: 065
     Dates: start: 201009, end: 20121115
  3. ADALIMUMAB [Suspect]
     Route: 065
     Dates: start: 20121231
  4. CYCLOPHOSPHAMIDE [Concomitant]
     Route: 065
     Dates: start: 201106, end: 201202
  5. PREDNISOLONE [Concomitant]
     Route: 065
  6. PIROXICAM [Concomitant]
     Route: 065
  7. CORVATON RETARD [Concomitant]
     Route: 065
  8. FUROSEMIDE [Concomitant]
     Route: 065
  9. OMEPRAZOL [Concomitant]
     Route: 065
  10. VERAHEXAL [Concomitant]
     Route: 065
  11. MCP [Concomitant]
     Route: 065

REACTIONS (2)
  - Abscess [Recovered/Resolved]
  - Lymphoedema [Unknown]
